FAERS Safety Report 8773324 (Version 1)
Quarter: 2012Q4

REPORT INFORMATION
  Report Type: Report from Study
  Country: GB (occurrence: GB)
  Receive Date: 20120907
  Receipt Date: 20120907
  Transmission Date: 20130627
  Serious: Yes (Other)
  Sender: FDA-Public Use
  Company Number: GB-VERTEX PHARMACEUTICAL INC.-2012-020619

PATIENT
  Age: 61 Year
  Sex: Male

DRUGS (5)
  1. VX-950 [Suspect]
     Indication: HEPATITIS C
     Dosage: 750 mg, tid
     Dates: start: 20120601, end: 20120820
  2. RIBAVIRIN [Concomitant]
     Indication: HEPATITIS C
     Dosage: Dosage Form: Unspecified
     Route: 048
     Dates: start: 20120601
  3. RIBAVIRIN [Concomitant]
     Dosage: Dosage Form: Unspecified
     Route: 048
  4. PEG INTERFERON [Concomitant]
     Indication: HEPATITIS C
     Dosage: Dosage Form: Unspecified
     Route: 058
     Dates: start: 20120601
  5. PEG INTERFERON [Concomitant]
     Dosage: Dosage Form: Unspecified
     Route: 058

REACTIONS (1)
  - Rash [Recovered/Resolved]
